FAERS Safety Report 8616817-3 (Version None)
Quarter: 2012Q3

REPORT INFORMATION
  Report Type: 
  Country: None (occurrence: None)
  Receive Date: 20120823
  Receipt Date: 20120808
  Transmission Date: 20120928
  Serious: No
  Sender: FDA-Public Use
  Company Number: US-009507513-1208USA004607

PATIENT

DRUGS (3)
  1. VITAMIN D [Concomitant]
  2. IBUPROFEN [Concomitant]
  3. IMPLANON [Suspect]
     Indication: CONTRACEPTION
     Dosage: 1 DF, UNK
     Route: 059

REACTIONS (2)
  - NO ADVERSE EVENT [None]
  - DEVICE BREAKAGE [None]
